FAERS Safety Report 8920641 (Version 1)
Quarter: 2012Q4

REPORT INFORMATION
  Report Type: 
  Country: US (occurrence: US)
  Receive Date: 20121122
  Receipt Date: 20121122
  Transmission Date: 20130627
  Serious: Yes (Other)
  Sender: FDA-Public Use
  Company Number: CHPA2012US023800

PATIENT
  Sex: Male

DRUGS (1)
  1. VOLTAREN GEL [Suspect]
     Dosage: Unk, Unk
     Route: 061

REACTIONS (2)
  - Haemorrhage [Unknown]
  - Drug administered at inappropriate site [Unknown]
